FAERS Safety Report 7245881-1 (Version None)
Quarter: 2011Q1

REPORT INFORMATION
  Report Type: 
  Country: None (occurrence: None)
  Receive Date: 20110126
  Receipt Date: 20110113
  Transmission Date: 20110831
  Serious: Yes (Hospitalization)
  Sender: FDA-Public Use
  Company Number: US-ELI_LILLY_AND_COMPANY-US201101003850

PATIENT
  Age: 62 Year
  Sex: Female

DRUGS (9)
  1. VITAMIN D [Concomitant]
  2. ASPIRIN [Concomitant]
     Dosage: UNK, DAILY (1/D)
  3. FISH OIL [Concomitant]
  4. CYMBALTA [Suspect]
     Indication: MENOPAUSAL DEPRESSION
     Dosage: 30 MG, DAILY (1/D)
  5. METFORMIN [Concomitant]
  6. CYMBALTA [Suspect]
     Dosage: 60 MG, DAILY (1/D)
  7. BYETTA [Concomitant]
  8. ANTIHYPERTENSIVES [Concomitant]
  9. HYDROCHLOROTHIAZIDE [Concomitant]

REACTIONS (11)
  - LIVER FUNCTION TEST ABNORMAL [None]
  - FATIGUE [None]
  - DIABETES MELLITUS [None]
  - HEPATIC LESION [None]
  - FLANK PAIN [None]
  - HEPATOMEGALY [None]
  - OXYGEN SATURATION DECREASED [None]
  - HEPATIC STEATOSIS [None]
  - BLOOD GLUCOSE INCREASED [None]
  - MENOPAUSAL DEPRESSION [None]
  - OFF LABEL USE [None]
